FAERS Safety Report 7670087-1 (Version None)
Quarter: 2011Q3

REPORT INFORMATION
  Report Type: 
  Country: None (occurrence: None)
  Receive Date: 20110808
  Receipt Date: 20110803
  Transmission Date: 20111222
  Serious: Yes (Other)
  Sender: FDA-Public Use
  Company Number: US-PFIZER INC-2011177903

PATIENT
  Sex: Female
  Weight: 57 kg

DRUGS (5)
  1. PRISTIQ [Suspect]
     Dosage: 100 MG, 1X/DAY
     Route: 048
     Dates: start: 20110701
  2. LOMOTIL [Concomitant]
     Indication: ABDOMINAL DISCOMFORT
     Dosage: UNK
  3. PRISTIQ [Suspect]
     Indication: ANXIETY
     Dosage: 50 MG, 1X/DAY
     Route: 048
     Dates: start: 20110701, end: 20110701
  4. EFFEXOR [Suspect]
     Dosage: UNK
     Dates: end: 20110701
  5. MULTI-VITAMINS [Concomitant]
     Dosage: UNK

REACTIONS (4)
  - DRUG INEFFECTIVE [None]
  - MEDICATION RESIDUE [None]
  - PANIC ATTACK [None]
  - ANXIETY [None]
